FAERS Safety Report 11327615 (Version 1)
Quarter: 2015Q3

REPORT INFORMATION
  Report Type: Spontaneous
  Country: US (occurrence: None)
  Receive Date: 20150629
  Receipt Date: 20150629
  Transmission Date: 20151125
  Serious: No
  Sender: FDA-Public Use
  Company Number: A-US2014-108866

PATIENT
  Age: 0 Day

DRUGS (4)
  1. ADCIRCA [Concomitant]
     Active Substance: TADALAFIL
  2. KLOR-CON [Concomitant]
     Active Substance: POTASSIUM CHLORIDE
  3. OPSUMIT [Suspect]
     Active Substance: MACITENTAN
     Indication: EXPOSURE DURING PREGNANCY
     Route: 064
     Dates: start: 201405, end: 20140522
  4. FUROSEMIDE (FUROSEMIDE SODIUM) [Concomitant]

REACTIONS (2)
  - Normal newborn [None]
  - Maternal exposure during pregnancy [None]

NARRATIVE: CASE EVENT DATE: 20141106
